FAERS Safety Report 4480619-2 (Version None)
Quarter: 2004Q4

REPORT INFORMATION
  Report Type: 
  Country: None (occurrence: None)
  Receive Date: 20041019
  Receipt Date: 20041007
  Transmission Date: 20050328
  Serious: Yes (Other)
  Sender: FDA-Public Use
  Company Number: 2004076682

PATIENT

DRUGS (2)
  1. LIPITOR [Suspect]
     Indication: ILL-DEFINED DISORDER
     Dosage: (20 MG)
  2. CIPROFLOXACIN [Concomitant]

REACTIONS (2)
  - PROSTATITIS [None]
  - RHABDOMYOLYSIS [None]
